FAERS Safety Report 15512448 (Version 1)
Quarter: 2018Q4

REPORT INFORMATION
  Report Type: Spontaneous
  Country: US (occurrence: US)
  Receive Date: 20181017
  Receipt Date: 20181017
  Transmission Date: 20190205
  Serious: Yes (Death)
  Sender: FDA-Public Use
  Company Number: None

PATIENT
  Age: 74 Year
  Sex: Female
  Weight: 81.5 kg

DRUGS (2)
  1. ASPIRIN. [Suspect]
     Active Substance: ASPIRIN
     Indication: PRODUCT USED FOR UNKNOWN INDICATION
     Route: 048
     Dates: start: 20180814, end: 20180814
  2. TICAGRELOR. [Suspect]
     Active Substance: TICAGRELOR
     Indication: PRODUCT USED FOR UNKNOWN INDICATION
     Dosage: ?          OTHER FREQUENCY:ONCE;?
     Route: 048
     Dates: start: 20180814, end: 20180814

REACTIONS (9)
  - Hypertension [None]
  - Mental status changes [None]
  - Cardiac arrest [None]
  - Headache [None]
  - Atrial fibrillation [None]
  - Pulseless electrical activity [None]
  - Subdural haemorrhage [None]
  - Cerebral haemorrhage [None]
  - Brain midline shift [None]

NARRATIVE: CASE EVENT DATE: 20180814
